FAERS Safety Report 11453788 (Version 3)
Quarter: 2017Q2

REPORT INFORMATION
  Report Type: Spontaneous
  Country: PH (occurrence: PH)
  Receive Date: 20150903
  Receipt Date: 20170508
  Transmission Date: 20170829
  Serious: Yes (Death, Life-Threatening, Hospitalization, Other)
  Sender: FDA-Public Use
  Company Number: PH-SA-2015SA133608

PATIENT
  Age: 6 Year
  Sex: Female
  Weight: 18.86 kg

DRUGS (3)
  1. CLINDAMYCIN. [Concomitant]
     Active Substance: CLINDAMYCIN
     Indication: INFECTION
     Dates: start: 20150713, end: 20150822
  2. CEREZYME [Suspect]
     Active Substance: IMIGLUCERASE
     Indication: GAUCHER^S DISEASE TYPE III
     Dosage: DOSE:60 UNIT(S)/KILOGRAM BODYWEIGHT
     Route: 041
     Dates: start: 20121220, end: 20150713
  3. CEFUROXIME. [Concomitant]
     Active Substance: CEFUROXIME
     Indication: INFECTION
     Dates: start: 20150713, end: 20150822

REACTIONS (6)
  - Pneumonia [Fatal]
  - Myoclonus [Not Recovered/Not Resolved]
  - Regurgitation [Unknown]
  - Acute respiratory distress syndrome [Fatal]
  - Pneumonia aspiration [Not Recovered/Not Resolved]
  - Cyanosis [Unknown]

NARRATIVE: CASE EVENT DATE: 2015
